FAERS Safety Report 6913163-0 (Version None)
Quarter: 2010Q3

REPORT INFORMATION
  Report Type: 
  Country: None (occurrence: None)
  Receive Date: 20100806
  Receipt Date: 20091012
  Transmission Date: 20110219
  Serious: No
  Sender: FDA-Public Use
  Company Number: US-PFIZER INC-2009239514

PATIENT
  Sex: Female

DRUGS (2)
  1. DISOPYRAMIDE PHOSPHATE [Suspect]
     Indication: CARDIAC DISORDER
     Dosage: 150 MG, 3X/DAY
  2. NORPACE - SLOW RELEASE [Concomitant]
     Indication: CARDIAC DISORDER
     Dosage: 150 MG, UNK

REACTIONS (8)
  - ABDOMINAL DISTENSION [None]
  - BLOOD PRESSURE INCREASED [None]
  - CHROMATURIA [None]
  - DEPRESSION [None]
  - DYSPEPSIA [None]
  - EXTRASYSTOLES [None]
  - PALPITATIONS [None]
  - RASH [None]
